FAERS Safety Report 26168593 (Version 1)
Quarter: 2025Q4

REPORT INFORMATION
  Report Type: Spontaneous
  Country: US (occurrence: US)
  Receive Date: 20251217
  Receipt Date: 20251217
  Transmission Date: 20260117
  Serious: Yes (Other)
  Sender: AZURITY PHARMACEUTICALS
  Company Number: US-AZURITY PHARMACEUTICALS, INC.-AZR202512-003752

PATIENT
  Age: 52 Year
  Sex: Female

DRUGS (6)
  1. LISINOPRIL [Suspect]
     Active Substance: LISINOPRIL
     Indication: Primary hyperaldosteronism
     Dosage: UNK (STARTING DOSE)
     Route: 065
  2. LISINOPRIL [Suspect]
     Active Substance: LISINOPRIL
     Dosage: TRIPLE DOSE OF 25 MILLIGRAM, (INCREASED DOSE)
     Route: 065
  3. SPIRONOLACTONE [Suspect]
     Active Substance: SPIRONOLACTONE
     Indication: Primary hyperaldosteronism
     Dosage: UNK (STARTING DOSE)
     Route: 065
  4. SPIRONOLACTONE [Suspect]
     Active Substance: SPIRONOLACTONE
     Dosage: TRIPLE DOSE OF 25 MILLIGRAM, (INCREASED DOSE) 25 MILLIGRAM, (INCREASED DOSE)
     Route: 065
  5. POTASSIUM CHLORIDE [Suspect]
     Active Substance: POTASSIUM CHLORIDE
     Indication: Primary hyperaldosteronism
     Dosage: UNK (STARTING DOSE)
     Route: 065
  6. POTASSIUM CHLORIDE [Suspect]
     Active Substance: POTASSIUM CHLORIDE
     Dosage: TRIPLE DOSE OF 20 MILLIGRAM, (INCREASED DOSE)
     Route: 065

REACTIONS (4)
  - Renal tubular acidosis [Recovering/Resolving]
  - Hyperkalaemia [Recovering/Resolving]
  - Intentional product use issue [Unknown]
  - Product use in unapproved indication [Unknown]
